FAERS Safety Report 7254418-2 (Version None)
Quarter: 2011Q1

REPORT INFORMATION
  Report Type: 
  Country: None (occurrence: None)
  Receive Date: 20110129
  Receipt Date: 20100424
  Transmission Date: 20110831
  Serious: No
  Sender: FDA-Public Use
  Company Number: US-ABBOTT-10P-163-0640525-00

PATIENT
  Sex: Female
  Weight: 61.744 kg

DRUGS (2)
  1. HUMIRA [Suspect]
  2. HUMIRA [Suspect]
     Indication: CROHN'S DISEASE
     Dates: start: 20100423

REACTIONS (4)
  - ABDOMINAL PAIN [None]
  - NAUSEA [None]
  - INJECTION SITE MACULE [None]
  - INJECTION SITE ERYTHEMA [None]
